FAERS Safety Report 7263492-9 (Version None)
Quarter: 2011Q1

REPORT INFORMATION
  Report Type: 
  Country: None (occurrence: None)
  Receive Date: 20110130
  Receipt Date: 20101215
  Transmission Date: 20110831
  Serious: No
  Sender: FDA-Public Use
  Company Number: US-ABBOTT-10P-163-0691755-00

PATIENT
  Age: 38 Year
  Sex: Male

DRUGS (2)
  1. SYNTHROID [Concomitant]
     Indication: HYPOTHYROIDISM
  2. HUMIRA [Suspect]
     Indication: PSORIASIS
     Dates: start: 20100801

REACTIONS (4)
  - PSORIASIS [None]
  - TREMOR [None]
  - ARTHRALGIA [None]
  - VISUAL ACUITY REDUCED [None]
